FAERS Safety Report 24845376 (Version 1)
Quarter: 2025Q1

REPORT INFORMATION
  Report Type: Spontaneous
  Country: DE (occurrence: DE)
  Receive Date: 20250115
  Receipt Date: 20250115
  Transmission Date: 20250409
  Serious: Yes (Other)
  Sender: SAMSUNG BIOEPIS
  Company Number: None

PATIENT
  Age: 46 Year
  Sex: Female
  Weight: 58 kg

DRUGS (1)
  1. ETANERCEPT [Suspect]
     Active Substance: ETANERCEPT
     Indication: Spondylitis
     Route: 058
     Dates: start: 20240902, end: 20241117

REACTIONS (10)
  - Renal injury [Unknown]
  - Myocardial injury [Unknown]
  - Blood glucose increased [Recovering/Resolving]
  - Alopecia [Not Recovered/Not Resolved]
  - Pruritus [Not Recovered/Not Resolved]
  - Blood pressure increased [Not Recovered/Not Resolved]
  - Dermatitis atopic [Not Recovered/Not Resolved]
  - Onychoclasis [Not Recovered/Not Resolved]
  - Acne [Not Recovered/Not Resolved]
  - Product substitution issue [Unknown]

NARRATIVE: CASE EVENT DATE: 20240905
